FAERS Safety Report 24224748 (Version 2)
Quarter: 2024Q3

REPORT INFORMATION
  Report Type: Spontaneous
  Country: US (occurrence: US)
  Receive Date: 20240819
  Receipt Date: 20240918
  Transmission Date: 20241016
  Serious: Yes (Other)
  Sender: AIMMUNE
  Company Number: US-AIMMUNE THERAPEUTICS, INC.-2024AIMT01248

PATIENT

DRUGS (3)
  1. VOWST [Suspect]
     Active Substance: DONOR HUMAN STOOL SPORES (ETHANOL TREATED)
     Indication: Clostridium colitis
     Dosage: 4 CAPSULES, 1X/DAY
     Route: 048
     Dates: start: 20240813
  2. VOWST [Suspect]
     Active Substance: DONOR HUMAN STOOL SPORES (ETHANOL TREATED)
     Dosage: 4 CAPSULES, ONCE, LAST DOSE PROR TO EVENTS COVID, SWEATING, FEELING HOT, DIARRHEA, NAUSEA
     Route: 048
     Dates: start: 20240813, end: 20240813
  3. VOWST [Suspect]
     Active Substance: DONOR HUMAN STOOL SPORES (ETHANOL TREATED)
     Dosage: 4 CAPSULES, ONCE, LAST DOSE PROR TO EVENTS BOWEL MOVEMENT SMELLING UNUSUAL
     Route: 048

REACTIONS (6)
  - COVID-19 [Unknown]
  - Hyperhidrosis [Unknown]
  - Feeling hot [Unknown]
  - Diarrhoea [Unknown]
  - Nausea [Unknown]
  - Abnormal faeces [Unknown]

NARRATIVE: CASE EVENT DATE: 20240101
